FAERS Safety Report 8909211 (Version 1)
Quarter: 2012Q4

REPORT INFORMATION
  Report Type: Spontaneous
  Country: TR (occurrence: None)
  Receive Date: 20121107
  Receipt Date: 20121107
  Transmission Date: 20130627
  Serious: Yes (Other)
  Sender: FDA-Public Use
  Company Number: DSA_60465_2012

PATIENT

DRUGS (4)
  1. FLUOROURACIL (FLUOROURACIL) [Suspect]
     Indication: GASTRIC CANCER
     Dosage: (2-hour infusion on day 1)
  2. FLUOROURACIL (FLUOROURACIL) [Suspect]
     Indication: GASTRIC CANCER
     Dosage: (continuous infusion every two weeks)
     Route: 042
  3. IRINOTECAN [Suspect]
     Indication: GASTRIC CANCER
     Dosage: (2-hour infusion on day 1)
     Route: 042
  4. LEUCOVORIN [Suspect]
     Indication: GASTRIC CANCER
     Dosage: (2-hour infusion)

REACTIONS (2)
  - Diarrhoea [None]
  - Haematotoxicity [None]
